FAERS Safety Report 12599185 (Version 2)
Quarter: 2016Q3

REPORT INFORMATION
  Report Type: Report from Study
  Country: JP (occurrence: JP)
  Receive Date: 20160727
  Receipt Date: 20160823
  Transmission Date: 20161109
  Serious: Yes (Life-Threatening, Other)
  Sender: FDA-Public Use
  Company Number: JP-ASTELLAS-2009JP007891

PATIENT
  Age: 58 Year
  Sex: Female
  Weight: 62 kg

DRUGS (48)
  1. TACROLIMUS. [Suspect]
     Active Substance: TACROLIMUS
     Route: 048
     Dates: start: 20160423
  2. MICARDIS [Concomitant]
     Active Substance: TELMISARTAN
     Indication: HYPERTENSION
     Route: 048
     Dates: start: 20100313, end: 20120914
  3. MICARDIS [Concomitant]
     Active Substance: TELMISARTAN
     Route: 048
     Dates: start: 20120914, end: 20140212
  4. MICARDIS [Concomitant]
     Active Substance: TELMISARTAN
     Route: 048
     Dates: start: 20140212
  5. LASIX [Concomitant]
     Active Substance: FUROSEMIDE
     Indication: OEDEMA
     Route: 048
     Dates: start: 20131219
  6. CARDENALIN [Concomitant]
     Active Substance: DOXAZOSIN MESYLATE
     Indication: HYPERTENSION
     Route: 048
     Dates: start: 20140217, end: 20140227
  7. ISODINE [Concomitant]
     Active Substance: POVIDONE-IODINE
     Indication: PHARYNGITIS
     Dosage: UNK UNK, UNKNOWN FREQ.
     Route: 065
  8. ISODINE [Concomitant]
     Active Substance: POVIDONE-IODINE
     Indication: UPPER RESPIRATORY TRACT INFLAMMATION
  9. FLAVERIC [Concomitant]
     Active Substance: BENPROPERINE PHOSPHATE
     Indication: PHARYNGITIS
     Route: 065
  10. RINDERON V [Concomitant]
     Active Substance: BETAMETHASONE VALERATE
     Indication: BOWEN^S DISEASE
     Dosage: UNK UNK, UNKNOWN FREQ.
     Route: 065
  11. PREDNISOLONE. [Suspect]
     Active Substance: PREDNISOLONE
     Indication: LUPUS NEPHRITIS
     Route: 048
     Dates: end: 20071103
  12. ULGUT                              /00963803/ [Concomitant]
     Indication: PROPHYLAXIS
     Route: 048
  13. URINORM [Concomitant]
     Active Substance: BENZBROMARONE
     Indication: HYPERURICAEMIA
     Route: 048
     Dates: start: 20110910, end: 20120128
  14. FEBURIC [Concomitant]
     Active Substance: FEBUXOSTAT
     Indication: HYPERURICAEMIA
     Route: 048
     Dates: start: 20140213
  15. PANTOSIN [Concomitant]
     Active Substance: PANTETHINE
     Indication: GASTROENTERITIS
     Route: 048
     Dates: start: 20110311, end: 20120829
  16. PROTECADIN [Concomitant]
     Active Substance: LAFUTIDINE
     Indication: GASTROENTERITIS
     Route: 048
     Dates: start: 20140218
  17. LIPITOR [Suspect]
     Active Substance: ATORVASTATIN CALCIUM
     Indication: HYPERLIPIDAEMIA
     Route: 048
     Dates: end: 20080321
  18. MIYA-BM [Concomitant]
     Active Substance: CLOSTRIDIUM BUTYRICUM SPORES STRAIN M-55
     Indication: GASTROENTERITIS
     Route: 048
     Dates: start: 20141211
  19. TATHION [Concomitant]
     Active Substance: GLUTATHIONE
     Indication: CATARACT
     Dosage: UNK UNK, UNKNOWN FREQ.
     Route: 065
  20. TACROLIMUS. [Suspect]
     Active Substance: TACROLIMUS
     Route: 048
     Dates: start: 20090912, end: 20091113
  21. TACROLIMUS. [Suspect]
     Active Substance: TACROLIMUS
     Route: 048
     Dates: start: 20091114, end: 20160422
  22. PREDNISOLONE. [Suspect]
     Active Substance: PREDNISOLONE
     Route: 048
     Dates: start: 20140207
  23. JUVELA N [Concomitant]
     Active Substance: TOCOPHERYL NICOTINATE, D-.ALPHA.
     Indication: HYPERLIPIDAEMIA
     Route: 048
  24. CARDENALIN [Concomitant]
     Active Substance: DOXAZOSIN MESYLATE
     Route: 048
     Dates: start: 20140227
  25. SHAKUYAKUKANZOTO [Concomitant]
     Active Substance: HERBALS
     Indication: GASTROENTERITIS
     Route: 048
     Dates: start: 20140605
  26. FLAVERIC [Concomitant]
     Active Substance: BENPROPERINE PHOSPHATE
     Indication: UPPER RESPIRATORY TRACT INFLAMMATION
  27. GENTACIN [Concomitant]
     Active Substance: GENTAMICIN SULFATE
     Indication: BOWEN^S DISEASE
     Dosage: UNK UNK, UNKNOWN FREQ.
     Route: 065
  28. CALONAL [Concomitant]
     Active Substance: ACETAMINOPHEN
     Indication: PRODUCT USED FOR UNKNOWN INDICATION
     Route: 048
     Dates: start: 20070728, end: 20071214
  29. CEFZON [Concomitant]
     Active Substance: CEFDINIR
     Indication: PHARYNGITIS
     Route: 048
  30. LAC B [Concomitant]
     Active Substance: BIFIDOBACTERIUM SPP.
     Indication: GASTROENTERITIS
     Dosage: UNK UNK, UNKNOWN FREQ.
     Route: 065
  31. ZEFNART [Concomitant]
     Indication: TINEA CRURIS
  32. PREDNISOLONE. [Suspect]
     Active Substance: PREDNISOLONE
     Dosage: 15MG/10MG, EVERY OTHER DAY
     Route: 048
     Dates: start: 20120728, end: 20140206
  33. CRESTOR [Concomitant]
     Active Substance: ROSUVASTATIN CALCIUM
     Indication: HYPERLIPIDAEMIA
     Route: 048
     Dates: start: 20080322
  34. BENET [Concomitant]
     Active Substance: RISEDRONATE SODIUM
     Indication: PROPHYLAXIS
     Route: 048
  35. CERCINE [Concomitant]
     Active Substance: DIAZEPAM
     Indication: PRODUCT USED FOR UNKNOWN INDICATION
     Route: 048
  36. CALONAL [Concomitant]
     Active Substance: ACETAMINOPHEN
     Route: 048
     Dates: start: 20091114, end: 20150625
  37. ARTIST [Concomitant]
     Active Substance: CARVEDILOL
     Indication: HYPERTENSION
     Route: 048
     Dates: start: 20120914, end: 20130509
  38. ARTIST [Concomitant]
     Active Substance: CARVEDILOL
     Route: 048
     Dates: start: 20130510
  39. BIOFERMIN                          /01617201/ [Concomitant]
     Active Substance: BACILLUS SUBTILIS\LACTOBACILLUS ACIDOPHILUS\STREPTOCOCCUS FAECAIS
     Indication: GASTROENTERITIS
     Route: 048
     Dates: start: 20140218
  40. ZEFNART [Concomitant]
     Indication: BOWEN^S DISEASE
     Dosage: UNK UNK, UNKNOWN FREQ.
     Route: 065
  41. TACROLIMUS. [Suspect]
     Active Substance: TACROLIMUS
     Indication: LUPUS NEPHRITIS
     Route: 048
     Dates: start: 20070728, end: 20090911
  42. PREDNISOLONE. [Suspect]
     Active Substance: PREDNISOLONE
     Route: 048
     Dates: start: 20080323, end: 20120727
  43. ATELEC [Concomitant]
     Active Substance: CILNIDIPINE
     Indication: HYPERTENSION
     Route: 048
     Dates: start: 20120914
  44. PREDNISOLONE. [Suspect]
     Active Substance: PREDNISOLONE
     Dosage: 20MG/15MG, EVERY OTHER DAY
     Route: 048
     Dates: start: 20071214, end: 20080322
  45. METHYCOBAL [Concomitant]
     Active Substance: METHYLCOBALAMIN
     Indication: PRODUCT USED FOR UNKNOWN INDICATION
     Route: 048
  46. CALONAL [Concomitant]
     Active Substance: ACETAMINOPHEN
     Route: 048
     Dates: start: 20071215, end: 20091113
  47. BEZATOL [Concomitant]
     Active Substance: BEZAFIBRATE
     Indication: NON-ALCOHOLIC STEATOHEPATITIS
     Route: 048
     Dates: start: 20100115
  48. CEFZON [Concomitant]
     Active Substance: CEFDINIR
     Indication: UPPER RESPIRATORY TRACT INFLAMMATION

REACTIONS (13)
  - Hypoaesthesia [Unknown]
  - Hepatic function abnormal [Recovered/Resolved]
  - Pharyngitis [Recovering/Resolving]
  - Hyperuricaemia [Not Recovered/Not Resolved]
  - Non-alcoholic steatohepatitis [Not Recovered/Not Resolved]
  - Tinea cruris [Recovering/Resolving]
  - Bowen^s disease [Not Recovered/Not Resolved]
  - Cervical dysplasia [Not Recovered/Not Resolved]
  - Upper respiratory tract inflammation [Recovering/Resolving]
  - Cataract [Unknown]
  - Osteoporosis [Unknown]
  - Hypertension [Not Recovered/Not Resolved]
  - Gastroenteritis [Recovering/Resolving]

NARRATIVE: CASE EVENT DATE: 200801
